FAERS Safety Report 9617648 (Version 3)
Quarter: 2013Q4

REPORT INFORMATION
  Report Type: Spontaneous
  Country: IT (occurrence: IT)
  Receive Date: 20131011
  Receipt Date: 20131125
  Transmission Date: 20140711
  Serious: Yes (Hospitalization)
  Sender: FDA-Public Use
  Company Number: IT-ABBVIE-13P-083-1156717-00

PATIENT
  Age: 51 Year
  Sex: Male

DRUGS (3)
  1. KLACID [Suspect]
     Indication: TRACHEOBRONCHITIS
     Route: 048
     Dates: start: 20130910, end: 20130914
  2. CORTISONE [Concomitant]
     Indication: PRODUCT USED FOR UNKNOWN INDICATION
  3. CLENIL [Concomitant]
     Indication: PRODUCT USED FOR UNKNOWN INDICATION

REACTIONS (1)
  - Drug-induced liver injury [Not Recovered/Not Resolved]
